FAERS Safety Report 21644414 (Version 2)
Quarter: 2022Q4

REPORT INFORMATION
  Report Type: Spontaneous
  Country: BE (occurrence: BE)
  Receive Date: 20221125
  Receipt Date: 20221201
  Transmission Date: 20230113
  Serious: Yes (Other)
  Sender: FDA-Public Use
  Company Number: BE-002147023-NVSC2022BE262557

PATIENT
  Age: 44 Year

DRUGS (2)
  1. ETANERCEPT [Suspect]
     Active Substance: ETANERCEPT
     Indication: Inflammatory bowel disease
     Dosage: UNK, UNKNOWN (STANDARD DOSE)
     Route: 065
  2. USTEKINUMAB [Suspect]
     Active Substance: USTEKINUMAB
     Indication: Inflammatory bowel disease
     Dosage: UNK, UNKNOWN (INCREASED DOSE)
     Route: 065

REACTIONS (2)
  - Anal abscess [Recovered/Resolved]
  - Product use in unapproved indication [Unknown]
